FAERS Safety Report 14956995 (Version 2)
Quarter: 2018Q2

REPORT INFORMATION
  Report Type: Report from Study
  Country: CA (occurrence: CA)
  Receive Date: 20180531
  Receipt Date: 20180610
  Transmission Date: 20180711
  Serious: Yes (Hospitalization)
  Sender: FDA-Public Use
  Company Number: PHHY2018CA010250

PATIENT
  Age: 48 Year
  Sex: Male
  Weight: 76.3 kg

DRUGS (4)
  1. LENVATINIB [Suspect]
     Active Substance: LENVATINIB
     Dosage: 14 MG, QD
     Route: 048
     Dates: start: 20180426
  2. EVEROLIMUS. [Suspect]
     Active Substance: EVEROLIMUS
     Indication: CLEAR CELL RENAL CELL CARCINOMA
     Dosage: 5 MG, QD
     Route: 048
     Dates: start: 20180322, end: 20180414
  3. LENVATINIB [Suspect]
     Active Substance: LENVATINIB
     Indication: CLEAR CELL RENAL CELL CARCINOMA
     Dosage: 18 MG, QD
     Route: 048
     Dates: start: 20180322, end: 20180414
  4. EVEROLIMUS. [Suspect]
     Active Substance: EVEROLIMUS
     Dosage: 5 MG, QD
     Route: 048
     Dates: start: 20180426

REACTIONS (10)
  - Blood alkaline phosphatase increased [Unknown]
  - Haemoglobin decreased [Unknown]
  - Vomiting [Unknown]
  - Enteritis [Recovered/Resolved]
  - Nausea [Unknown]
  - Haematocrit decreased [Unknown]
  - Lipase increased [Unknown]
  - Abdominal pain [Unknown]
  - Gamma-glutamyltransferase increased [Unknown]
  - Diarrhoea [Unknown]

NARRATIVE: CASE EVENT DATE: 20180416
